FAERS Safety Report 23937931 (Version 1)
Quarter: 2024Q2

REPORT INFORMATION
  Report Type: Spontaneous
  Country: CA (occurrence: CA)
  Receive Date: 20240604
  Receipt Date: 20240604
  Transmission Date: 20240716
  Serious: Yes (Other)
  Sender: FDA-Public Use
  Company Number: CA-PFIZER INC-202400185468

PATIENT
  Age: 37 Year

DRUGS (3)
  1. ADALIMUMAB [Suspect]
     Active Substance: ADALIMUMAB\ISOPROPYL ALCOHOL
     Indication: Retinal vasculitis
     Dosage: 40 MG, EVERY 2 WEEKS
     Route: 058
  2. AZATHIOPRINE [Suspect]
     Active Substance: AZATHIOPRINE
     Indication: Retinal vasculitis
     Dosage: 125 MG, 1X/DAY
     Route: 065
  3. PREDNISONE [Suspect]
     Active Substance: PREDNISONE
     Indication: Retinal vasculitis
     Dosage: UNK, 1X/DAY
     Route: 065

REACTIONS (2)
  - Multiple-drug resistance [Unknown]
  - Off label use [Unknown]
